FAERS Safety Report 7386583-0 (Version None)
Quarter: 2011Q1

REPORT INFORMATION
  Report Type: 
  Country: None (occurrence: None)
  Receive Date: 20110331
  Receipt Date: 20110324
  Transmission Date: 20110831
  Serious: Yes (Hospitalization)
  Sender: FDA-Public Use
  Company Number: US-GENZYME-CAMP-1001470

PATIENT

DRUGS (6)
  1. METHYLPREDNISOLONE [Concomitant]
     Indication: MULTIPLE SCLEROSIS
     Dosage: 1 G, QD
     Route: 042
     Dates: start: 20090216, end: 20090218
  2. METHYLPREDNISOLONE [Concomitant]
     Dosage: 1 G, QD
     Route: 042
     Dates: start: 20100223, end: 20100225
  3. PREDNISOLONE [Concomitant]
     Indication: PNEUMONIA
  4. CAMPATH [Suspect]
     Indication: MULTIPLE SCLEROSIS
     Dosage: 12 MG, QD
     Route: 042
     Dates: start: 20090216, end: 20090220
  5. CAMPATH [Suspect]
     Dosage: 12 MG, QD
     Route: 042
     Dates: start: 20100223, end: 20100225
  6. ZITHROMAX [Concomitant]

REACTIONS (1)
  - PNEUMONIA [None]
